FAERS Safety Report 8610971-5 (Version None)
Quarter: 2012Q3

REPORT INFORMATION
  Report Type: 
  Country: None (occurrence: None)
  Receive Date: 20120822
  Receipt Date: 20120816
  Transmission Date: 20120928
  Serious: Yes (Hospitalization)
  Sender: FDA-Public Use
  Company Number: 2012SP002332

PATIENT
  Sex: Female
  Weight: 51 kg

DRUGS (7)
  1. ARTHROTEC [Concomitant]
     Indication: PRODUCT USED FOR UNKNOWN INDICATION
     Dates: start: 20110501
  2. PERFOROMIST [Concomitant]
     Indication: PRODUCT USED FOR UNKNOWN INDICATION
     Route: 055
     Dates: start: 20110701
  3. VICODIN [Concomitant]
     Indication: PRODUCT USED FOR UNKNOWN INDICATION
     Dates: start: 20110501
  4. HUMIRA [Suspect]
     Indication: RHEUMATOID ARTHRITIS
     Dates: start: 20110501, end: 20111201
  5. PERCOCET [Concomitant]
     Indication: PRODUCT USED FOR UNKNOWN INDICATION
     Dates: start: 20110501
  6. XOPENEX [Suspect]
     Indication: RESPIRATORY DISORDER
     Route: 055
     Dates: start: 20110701, end: 20110701
  7. DRUGS FOR OBSTRUCTIVE AIRWAY DISEASES [Suspect]
     Indication: RESPIRATORY DISORDER
     Route: 055
     Dates: start: 20110701, end: 20110701

REACTIONS (3)
  - ABNORMAL LOSS OF WEIGHT [None]
  - FATIGUE [None]
  - CHRONIC OBSTRUCTIVE PULMONARY DISEASE [None]
